FAERS Safety Report 25816037 (Version 1)
Quarter: 2025Q3

REPORT INFORMATION
  Report Type: Spontaneous
  Country: US (occurrence: US)
  Receive Date: 20250918
  Receipt Date: 20250918
  Transmission Date: 20251020
  Serious: Yes (Death)
  Sender: KARYOPHARM THERAPEUTICS
  Company Number: US-KARYOPHARM-2025KPT100746

PATIENT

DRUGS (13)
  1. SELINEXOR [Suspect]
     Active Substance: SELINEXOR
     Indication: Plasma cell myeloma
     Route: 048
     Dates: start: 20241210
  2. ATIVAN [Concomitant]
     Active Substance: LORAZEPAM
  3. ZOFRAN [Concomitant]
     Active Substance: ONDANSETRON HYDROCHLORIDE
  4. PANTOPRAZOLE [Concomitant]
     Active Substance: PANTOPRAZOLE
  5. DEPAKOTE SPRINKLES [Concomitant]
     Active Substance: DIVALPROEX SODIUM
  6. ELIQUIS [Concomitant]
     Active Substance: APIXABAN
  7. NUEDEXTA [Concomitant]
     Active Substance: DEXTROMETHORPHAN HYDROBROMIDE\QUINIDINE SULFATE
  8. PROCRIT [Concomitant]
     Active Substance: ERYTHROPOIETIN
  9. POMALYST [Concomitant]
     Active Substance: POMALIDOMIDE
  10. DOXYCYCLINE HYCLATE [Concomitant]
     Active Substance: DOXYCYCLINE HYCLATE
  11. METRONIDAZOLE [Concomitant]
     Active Substance: METRONIDAZOLE
  12. OXYCODONE [Concomitant]
     Active Substance: OXYCODONE
  13. HALOPERIDOL [Concomitant]
     Active Substance: HALOPERIDOL

REACTIONS (1)
  - Death [Fatal]

NARRATIVE: CASE EVENT DATE: 20250916
